FAERS Safety Report 7003597-0 (Version None)
Quarter: 2010Q3

REPORT INFORMATION
  Report Type: 
  Country: None (occurrence: None)
  Receive Date: 20100916
  Receipt Date: 20100909
  Transmission Date: 20110219
  Serious: Yes (Other)
  Sender: FDA-Public Use
  Company Number: GER/UKI/10/0015715

PATIENT
  Age: 46 Year
  Sex: Female
  Weight: 138 kg

DRUGS (15)
  1. OMEPRAZOLE [Suspect]
     Indication: GASTROOESOPHAGEAL REFLUX DISEASE
     Dosage: 20 MG, ORAL
     Route: 048
     Dates: start: 20060511, end: 20100727
  2. AQUEOUS CREAM (CETOSTEARYL ALCOHOL) [Concomitant]
  3. BISOPROLOL FUMARATE [Concomitant]
  4. DIGOXIN [Concomitant]
  5. FERROUS SULFATE TAB [Concomitant]
  6. FUROSEMIDE (FUROSE(NIDE) [Concomitant]
  7. GLICLAZIDE (GLICLAZIDE) [Concomitant]
  8. ISOSORBIDE MONONITRATE [Concomitant]
  9. METFORMIN HCL [Concomitant]
  10. ACETAMINOPHEN [Concomitant]
  11. RAMIPRIL [Concomitant]
  12. SIMVASTATIN [Concomitant]
  13. SITAGLIPTIN (SITACLIPTIN) [Concomitant]
  14. TRAZODONE HCL [Concomitant]
  15. WARFARIN SODIUM [Concomitant]

REACTIONS (2)
  - HYPOCALCAEMIA [None]
  - TETANY [None]
